FAERS Safety Report 13128446 (Version 1)
Quarter: 2017Q1

REPORT INFORMATION
  Report Type: Report from Study
  Country: BR (occurrence: BR)
  Receive Date: 20170118
  Receipt Date: 20170118
  Transmission Date: 20170428
  Serious: Yes (Death, Other)
  Sender: FDA-Public Use
  Company Number: BR-ALEXION-A201610692

PATIENT
  Sex: Female

DRUGS (2)
  1. SOLIRIS [Suspect]
     Active Substance: ECULIZUMAB
     Dosage: 900 MG, Q2W
     Route: 042
     Dates: start: 20151008
  2. SOLIRIS [Suspect]
     Active Substance: ECULIZUMAB
     Indication: PAROXYSMAL NOCTURNAL HAEMOGLOBINURIA
     Dosage: 600 MG, QW
     Route: 042
     Dates: start: 20150827

REACTIONS (10)
  - Blast cell count increased [Fatal]
  - Haemoglobin decreased [Fatal]
  - Respiratory failure [Fatal]
  - Platelet count decreased [Fatal]
  - Abdominal pain [Unknown]
  - Cardio-respiratory arrest [Fatal]
  - Infection [Unknown]
  - Blood test abnormal [Unknown]
  - Leukaemia [Unknown]
  - Intestinal haemorrhage [Fatal]
